FAERS Safety Report 8613536-4 (Version None)
Quarter: 2012Q3

REPORT INFORMATION
  Report Type: 
  Country: None (occurrence: None)
  Receive Date: 20120823
  Receipt Date: 20120808
  Transmission Date: 20120928
  Serious: Yes (Hospitalization)
  Sender: FDA-Public Use
  Company Number: US-009507513-0904USA00560

PATIENT

DRUGS (3)
  1. HYDROCHLOROTHIAZIDE [Concomitant]
  2. PRINIVIL [Suspect]
     Indication: HYPERTENSION
     Route: 048
  3. ABILIFY [Suspect]
     Indication: SCHIZOPHRENIA
     Dosage: 400 MG, UNK
     Route: 030
     Dates: start: 20090129, end: 20090224

REACTIONS (2)
  - HALLUCINATION, AUDITORY [None]
  - SUICIDE ATTEMPT [None]
